FAERS Safety Report 24221534 (Version 1)
Quarter: 2024Q3

REPORT INFORMATION
  Report Type: Spontaneous
  Country: GB (occurrence: GB)
  Receive Date: 20240819
  Receipt Date: 20240819
  Transmission Date: 20241016
  Serious: Yes (Disabling, Other)
  Sender: AUROBINDO
  Company Number: GB-MHRA-MED-202408072348525630-ZFNMG

PATIENT
  Sex: Male

DRUGS (2)
  1. MONTELUKAST [Suspect]
     Active Substance: MONTELUKAST SODIUM
     Indication: Seizure
     Dosage: UNK (10)
     Route: 065
     Dates: start: 20230731, end: 20230803
  2. ESCITALOPRAM [Concomitant]
     Active Substance: ESCITALOPRAM OXALATE
     Indication: Anxiety disorder
     Dosage: UNK
     Route: 065
     Dates: start: 20230701

REACTIONS (2)
  - Mental disorder [Not Recovered/Not Resolved]
  - Medication error [Unknown]
